FAERS Safety Report 11131825 (Version 2)
Quarter: 2017Q4

REPORT INFORMATION
  Report Type: Spontaneous
  Country: JP (occurrence: JP)
  Receive Date: 20150522
  Receipt Date: 20171219
  Transmission Date: 20180320
  Serious: Yes (Other)
  Sender: FDA-Public Use
  Company Number: JP-OTSUKA-JP-2015-11435

PATIENT

DRUGS (5)
  1. FLUNITRAZEPAM [Concomitant]
     Active Substance: FLUNITRAZEPAM
     Indication: PRODUCT USED FOR UNKNOWN INDICATION
     Dosage: 2 MG, UNK
     Route: 065
     Dates: start: 20150227, end: 20150306
  2. ABILIFY [Suspect]
     Active Substance: ARIPIPRAZOLE
     Indication: DRUG ADMINISTERED TO PATIENT OF INAPPROPRIATE AGE
  3. LENDORMIN [Suspect]
     Active Substance: BROTIZOLAM
     Indication: PRODUCT USED FOR UNKNOWN INDICATION
     Dosage: 0.25 MG/DAY
     Route: 048
     Dates: start: 20150307, end: 20150307
  4. ABILIFY [Suspect]
     Active Substance: ARIPIPRAZOLE
     Indication: BIPOLAR I DISORDER
     Dosage: 3 MG/DAY
     Route: 048
     Dates: start: 20150227, end: 20150307
  5. ROHYPNOL [Concomitant]
     Active Substance: FLUNITRAZEPAM
     Indication: PRODUCT USED FOR UNKNOWN INDICATION
     Dosage: 2 MG/DAY
     Route: 048
     Dates: start: 20150227, end: 20150306

REACTIONS (3)
  - Drug administered to patient of inappropriate age [Unknown]
  - Stevens-Johnson syndrome [Recovered/Resolved with Sequelae]
  - Off label use [Unknown]

NARRATIVE: CASE EVENT DATE: 20150308
